FAERS Safety Report 24965601 (Version 4)
Quarter: 2025Q3

REPORT INFORMATION
  Report Type: Spontaneous
  Country: TR (occurrence: TR)
  Receive Date: 20250213
  Receipt Date: 20250715
  Transmission Date: 20251021
  Serious: Yes (Other)
  Sender: AMGEN
  Company Number: TR-AMGEN-TURSP2025002616

PATIENT
  Sex: Male

DRUGS (1)
  1. BLINCYTO [Suspect]
     Active Substance: BLINATUMOMAB
     Indication: Product used for unknown indication
     Route: 065

REACTIONS (4)
  - Acute lymphocytic leukaemia recurrent [Unknown]
  - Pneumonia fungal [Unknown]
  - Therapy partial responder [Unknown]
  - Platelet count abnormal [Unknown]
